FAERS Safety Report 7783842-4 (Version None)
Quarter: 2011Q3

REPORT INFORMATION
  Report Type: 
  Country: None (occurrence: None)
  Receive Date: 20110928
  Receipt Date: 20110919
  Transmission Date: 20111222
  Serious: Yes (Hospitalization)
  Sender: FDA-Public Use
  Company Number: FR-JNJFOC-20110105833

PATIENT
  Sex: Female

DRUGS (4)
  1. DOXORUBICIN HYDROCHLORIDE [Suspect]
     Dosage: FOURTH COURSE OF CHEMOTHERAPY
     Route: 042
  2. DOXORUBICIN HYDROCHLORIDE [Suspect]
     Indication: PRODUCT USED FOR UNKNOWN INDICATION
     Dosage: FIRST COURSE OF THE CHEMOTHERAPY
     Route: 042
     Dates: start: 20091015
  3. DOXORUBICIN HYDROCHLORIDE [Suspect]
     Route: 042
  4. DOXORUBICIN HYDROCHLORIDE [Suspect]
     Route: 042
     Dates: start: 20091227

REACTIONS (5)
  - THROMBOCYTOPENIA [None]
  - RASH [None]
  - NECROSIS [None]
  - NEUTROPENIA [None]
  - ELECTROCARDIOGRAM T WAVE INVERSION [None]
